FAERS Safety Report 8267832-3 (Version None)
Quarter: 2012Q2

REPORT INFORMATION
  Report Type: 
  Country: None (occurrence: None)
  Receive Date: 20120409
  Receipt Date: 20120402
  Transmission Date: 20120825
  Serious: Yes (Hospitalization, Other)
  Sender: FDA-Public Use
  Company Number: CA-TEVA-298268USA

PATIENT
  Sex: Female

DRUGS (14)
  1. PREDNISOLONE [Suspect]
     Indication: IMMUNOSUPPRESSION
  2. REPLAVITE                          /01775501/ [Concomitant]
     Dates: start: 20110307
  3. KETOROLAC TROMETHAMINE [Concomitant]
     Dates: start: 20110407
  4. CYCLOSPORINE [Suspect]
     Indication: IMMUNOSUPPRESSION
     Dosage: 125 MILLIGRAM;
     Route: 048
     Dates: start: 20070226
  5. INSULIN [Concomitant]
     Dates: start: 20110513
  6. CO-DAFALGAN [Concomitant]
  7. CALCIUM CARBONATE [Concomitant]
     Dates: start: 20110331
  8. FUROSEMIDE [Concomitant]
     Dates: start: 20110331
  9. MYCOPHENOLATE MOFETIL [Suspect]
     Indication: IMMUNOSUPPRESSION
  10. AMLODIPINE BESYLATE [Concomitant]
     Dates: start: 20110331
  11. OXYCET [Concomitant]
  12. ERGOCALCIFEROL [Concomitant]
     Dates: start: 20110307
  13. OMEPRAZOLE [Concomitant]
     Dates: start: 20110331
  14. TOBRADEX                           /01042701/ [Concomitant]
     Dates: start: 20110318

REACTIONS (3)
  - LOCALISED INFECTION [None]
  - PERIPHERAL ISCHAEMIA [None]
  - DIABETIC GANGRENE [None]
